FAERS Safety Report 4539543-9 (Version None)
Quarter: 2004Q4

REPORT INFORMATION
  Report Type: 
  Country: None (occurrence: None)
  Receive Date: 20041223
  Receipt Date: 20041115
  Transmission Date: 20050328
  Serious: Yes (Life-Threatening)
  Sender: FDA-Public Use
  Company Number: 9359

PATIENT
  Age: 34 Year
  Sex: Female

DRUGS (5)
  1. PACLITAXEL (BATCH #: P016854) [Suspect]
     Indication: BREAST CANCER
     Dosage: 270 MG FREQ, IV
     Route: 042
     Dates: start: 20041109, end: 20041109
  2. GRANISETRON [Concomitant]
  3. DEXAMETHASONE [Concomitant]
  4. CETIRIZINE [Concomitant]
  5. RANITIDINE [Concomitant]

REACTIONS (10)
  - AURICULAR SWELLING [None]
  - DYSPNOEA [None]
  - FACE OEDEMA [None]
  - FEELING ABNORMAL [None]
  - INFUSION RELATED REACTION [None]
  - LOCALISED OEDEMA [None]
  - LUNG DISORDER [None]
  - PALLOR [None]
  - RASH MACULAR [None]
  - VISUAL DISTURBANCE [None]
